FAERS Safety Report 19268906 (Version 6)
Quarter: 2022Q1

REPORT INFORMATION
  Report Type: Spontaneous
  Country: CA (occurrence: CA)
  Receive Date: 20210517
  Receipt Date: 20220311
  Transmission Date: 20220423
  Serious: Yes (Death, Hospitalization, Other)
  Sender: FDA-Public Use
  Company Number: CA-PFIZER INC-2021516313

PATIENT
  Age: 74 Year
  Sex: Female
  Weight: 48 kg

DRUGS (11)
  1. RUXIENCE [Suspect]
     Active Substance: RITUXIMAB-PVVR
     Indication: Rheumatoid arthritis
     Dosage: 1000 MG AT DAY 1 AND DAY 15
     Route: 042
     Dates: start: 20210503, end: 20210503
  2. RUXIENCE [Suspect]
     Active Substance: RITUXIMAB-PVVR
     Dosage: 1000 MG AT DAY 1 AND DAY 15
     Route: 042
     Dates: start: 20210517, end: 20210517
  3. BISOPROLOL [Concomitant]
     Active Substance: BISOPROLOL
     Dosage: 1 DF
  4. DULOXETINE [Concomitant]
     Active Substance: DULOXETINE
     Dosage: 1 DF
  5. ROSUVASTATIN [Concomitant]
     Active Substance: ROSUVASTATIN
     Dosage: 1 DF
  6. AMLODIPINE [Concomitant]
     Active Substance: AMLODIPINE BESYLATE
     Dosage: 1 DF
  7. PANTOPRAZOLE [Concomitant]
     Active Substance: PANTOPRAZOLE
     Dosage: 1 DF
  8. MYFORTIC [Concomitant]
     Active Substance: MYCOPHENOLATE SODIUM
     Dosage: 1 DF
     Dates: start: 202105
  9. PREDNISONE [Concomitant]
     Active Substance: PREDNISONE
     Dosage: 1 DF
  10. ACTONEL [Concomitant]
     Active Substance: RISEDRONATE SODIUM
     Dosage: 1 DF
  11. LORAZEPAM [Concomitant]
     Active Substance: LORAZEPAM
     Dosage: 1 DF

REACTIONS (4)
  - Respiratory failure [Fatal]
  - Interstitial lung disease [Fatal]
  - Oxygen saturation decreased [Unknown]
  - Heart rate increased [Unknown]

NARRATIVE: CASE EVENT DATE: 20210503
